FAERS Safety Report 7162190-X (Version None)
Quarter: 2010Q4

REPORT INFORMATION
  Report Type: 
  Country: None (occurrence: None)
  Receive Date: 20101215
  Receipt Date: 20090916
  Transmission Date: 20110411
  Serious: Yes (Other)
  Sender: FDA-Public Use
  Company Number: US-PFIZER INC-2009232092

PATIENT

DRUGS (1)
  1. LYRICA [Suspect]

REACTIONS (1)
  - HEPATIC ENZYME INCREASED [None]
